FAERS Safety Report 20905665 (Version 1)
Quarter: 2022Q2

REPORT INFORMATION
  Report Type: Spontaneous
  Country: US (occurrence: None)
  Receive Date: 20220602
  Receipt Date: 20220602
  Transmission Date: 20220720
  Serious: Yes (Hospitalization)
  Sender: FDA-Public Use
  Company Number: None

PATIENT
  Sex: Male
  Weight: 87.7 kg

DRUGS (2)
  1. AZACITIDINE [Suspect]
     Active Substance: AZACITIDINE
     Dates: end: 20220502
  2. VENETOCLAX [Suspect]
     Active Substance: VENETOCLAX
     Indication: Product used for unknown indication
     Dates: end: 20220506

REACTIONS (5)
  - Febrile neutropenia [None]
  - Pleural effusion [None]
  - Haemoglobin decreased [None]
  - Lung consolidation [None]
  - Atelectasis [None]

NARRATIVE: CASE EVENT DATE: 20220531
